FAERS Safety Report 5118515-X (Version None)
Quarter: 2006Q4

REPORT INFORMATION
  Report Type: 
  Country: None (occurrence: None)
  Receive Date: 20061002
  Receipt Date: 20060921
  Transmission Date: 20070319
  Serious: Yes (Hospitalization, Other)
  Sender: FDA-Public Use
  Company Number: GXKR2006US05820

PATIENT
  Age: 69 Year
  Sex: Male

DRUGS (8)
  1. SIMVASTATIN (NGX) [Suspect]
     Dosage: 40 MG, QD
     Route: 048
  2. CYCLOSPORINE [Suspect]
     Indication: RENAL TRANSPLANT
  3. URSODIOL [Concomitant]
  4. MYCOPHENOLIC ACID [Concomitant]
  5. PREDNISONE [Concomitant]
  6. NPH INSULIN [Concomitant]
  7. ATENOLOL [Concomitant]
  8. AMLODIPINE (NGX) [Suspect]

REACTIONS (10)
  - ABASIA [None]
  - ASTHENIA [None]
  - BLOOD CREATINE PHOSPHOKINASE INCREASED [None]
  - BLOOD CREATININE INCREASED [None]
  - BLOOD PRESSURE SYSTOLIC INCREASED [None]
  - CHROMATURIA [None]
  - DRUG INTERACTION [None]
  - MYALGIA [None]
  - RHABDOMYOLYSIS [None]
  - TRANSAMINASES INCREASED [None]
